FAERS Safety Report 4331231-7 (Version None)
Quarter: 2004Q1

REPORT INFORMATION
  Report Type: 
  Country: None (occurrence: None)
  Receive Date: 20040331
  Receipt Date: 20040318
  Transmission Date: 20041129
  Serious: Yes (Hospitalization)
  Sender: FDA-Public Use
  Company Number: RENA-10928

PATIENT
  Age: 61 Year
  Sex: Male
  Weight: 58 kg

DRUGS (11)
  1. RENAGEL [Suspect]
     Indication: HYPERPHOSPHATAEMIA
     Dosage: 1.5 G DAILY PO
     Route: 048
     Dates: start: 20040204, end: 20040217
  2. RENAGEL [Suspect]
     Indication: HYPERPHOSPHATAEMIA
     Dosage: 2.25 G DAILY PO
     Route: 048
     Dates: start: 20040218, end: 20040229
  3. ZALTOPROFEN [Suspect]
     Indication: ARTHRALGIA
     Dosage: 80 MG BID PO
     Route: 048
     Dates: start: 20040206, end: 20040229
  4. NORVASC [Concomitant]
  5. OCTOTIAMINE [Concomitant]
  6. RIBOFLAVIN [Concomitant]
  7. CYANOCOBALAMIN [Concomitant]
  8. PYRIDOXINE HYDROCHLORIDE [Concomitant]
  9. TEPRENONE [Concomitant]
  10. EPOGIN [Concomitant]
  11. ROCALTROL [Concomitant]

REACTIONS (10)
  - BLOOD PRESSURE DECREASED [None]
  - COLD SWEAT [None]
  - DIARRHOEA [None]
  - DUODENAL ULCER [None]
  - FAECES DISCOLOURED [None]
  - GASTRIC HAEMORRHAGE [None]
  - HAEMATOCRIT DECREASED [None]
  - MELAENA [None]
  - PALLOR [None]
  - RED BLOOD CELL COUNT DECREASED [None]
